FAERS Safety Report 25285032 (Version 1)
Quarter: 2025Q2

REPORT INFORMATION
  Report Type: Spontaneous
  Country: CN (occurrence: CN)
  Receive Date: 20250508
  Receipt Date: 20250508
  Transmission Date: 20250717
  Serious: Yes (Other)
  Sender: ALEXION PHARMACEUTICALS
  Company Number: CN-ASTRAZENECA-202505GLO003503CN

PATIENT
  Age: 38 Year

DRUGS (1)
  1. OSIMERTINIB [Suspect]
     Active Substance: OSIMERTINIB
     Indication: Lung adenocarcinoma
     Dosage: 80 MILLIGRAM, QD
     Route: 065

REACTIONS (6)
  - Malignant neoplasm progression [Unknown]
  - Malignant transformation [Unknown]
  - Metastases to adrenals [Unknown]
  - Drug resistance [Unknown]
  - Metastases to liver [Unknown]
  - Metastases to central nervous system [Unknown]
